FAERS Safety Report 7610247-9 (Version None)
Quarter: 2011Q3

REPORT INFORMATION
  Report Type: 
  Country: None (occurrence: None)
  Receive Date: 20110706
  Receipt Date: 20110621
  Transmission Date: 20111222
  Serious: Yes (Hospitalization)
  Sender: FDA-Public Use
  Company Number: KR-JNJFOC-20110607397

PATIENT
  Age: 47 Year
  Sex: Male
  Weight: 84.5 kg

DRUGS (10)
  1. CHLORHEXIDINE GLUCONATE [Concomitant]
  2. LIDOCAINE [Concomitant]
  3. BEECOM-HEXA (B-KOMPLEX) [Concomitant]
  4. NYSTATIN [Concomitant]
  5. DECITABINE [Suspect]
     Indication: MYELODYSPLASTIC SYNDROME
     Dosage: 20 MG/M2, INTRAVENOUS
     Route: 042
     Dates: start: 20110516, end: 20110520
  6. VIVIR (ACICLOVIR) [Concomitant]
  7. CITOPCIN (CIPROFLOXACIN HYDROCHLORIDE) [Concomitant]
  8. ITRAC 3 (ITRACONAZOLE) [Concomitant]
  9. VENITOL (DIOSMIN) [Concomitant]
  10. FOLIC ACID [Concomitant]

REACTIONS (3)
  - PAIN [None]
  - FEBRILE NEUTROPENIA [None]
  - ANAL ABSCESS [None]
